FAERS Safety Report 21227213 (Version 2)
Quarter: 2022Q3

REPORT INFORMATION
  Report Type: Spontaneous
  Country: JP (occurrence: JP)
  Receive Date: 20220818
  Receipt Date: 20220919
  Transmission Date: 20221026
  Serious: Yes (Death, Other)
  Sender: FDA-Public Use
  Company Number: JP-ASTELLAS-2022JP012343

PATIENT
  Age: 82 Year
  Sex: Male

DRUGS (1)
  1. PADCEV [Suspect]
     Active Substance: ENFORTUMAB VEDOTIN-EJFV
     Indication: Transitional cell carcinoma
     Dosage: 50 MG, 3 TIMES PER 4 WEEKS
     Route: 041
     Dates: start: 20220404, end: 20220413

REACTIONS (1)
  - Malignant neoplasm progression [Fatal]
